FAERS Safety Report 10020878 (Version 2)
Quarter: 2014Q1

REPORT INFORMATION
  Report Type: Spontaneous
  Country: US (occurrence: US)
  Receive Date: 20140319
  Receipt Date: 20140327
  Transmission Date: 20141002
  Serious: Yes (Other)
  Sender: FDA-Public Use
  Company Number: US-ASTRAZENECA-2014SE18004

PATIENT
  Sex: Female

DRUGS (2)
  1. FASLODEX [Suspect]
     Indication: BREAST CANCER METASTATIC
     Route: 030
     Dates: start: 201312
  2. XGEVA [Concomitant]
     Indication: BONE DISORDER

REACTIONS (6)
  - Bone cancer [Unknown]
  - Dizziness [Not Recovered/Not Resolved]
  - Blunted affect [Not Recovered/Not Resolved]
  - Depression [Unknown]
  - Neuropathy peripheral [Unknown]
  - Tooth discolouration [Unknown]
